FAERS Safety Report 8548627-X (Version None)
Quarter: 2012Q3

REPORT INFORMATION
  Report Type: 
  Country: None (occurrence: None)
  Receive Date: 20120730
  Receipt Date: 20120718
  Transmission Date: 20120928
  Serious: Yes (Death)
  Sender: FDA-Public Use
  Company Number: US-BAYER-2011-053612

PATIENT
  Age: 29 Year
  Sex: Female

DRUGS (16)
  1. LORAZEPAM [Concomitant]
     Indication: ANXIETY
     Dosage: 0.5 MG, UNK TID PRN
  2. ATIVAN [Concomitant]
     Indication: ANXIETY
     Dosage: 0.5 MG, PRN
  3. MINOCYCLINE HCL [Concomitant]
     Dosage: 50 MG, UNK
  4. YAZ [Suspect]
     Dosage: UNK
     Dates: start: 20090201
  5. CITALOPRAM HYDROBROMIDE [Concomitant]
     Indication: ANXIETY
     Dosage: 20 TO 40 MG STARTED APPROXIMATE 1 ? MONTHS PRIOR TO 03-FEB-2009;
  6. CITALOPRAM HYDROBROMIDE [Concomitant]
     Indication: DEPRESSION
  7. TRAMADOL HYDROCHLORIDE [Concomitant]
     Indication: PAIN
     Dosage: 50 MG TO 100 MG
  8. CLINDAMYCIN [Concomitant]
     Dosage: 1 %, UNK
  9. ETODOLAC [Concomitant]
     Dosage: 400 MG, UNK
  10. SOMA [Concomitant]
     Indication: MUSCLE SPASMS
     Dosage: 250 MG TO 350 MG TID, PRN
  11. ORTHO TRI-CYCLEN [Concomitant]
  12. IMITREX [Concomitant]
     Indication: MIGRAINE
     Dosage: 100 MG, PRN
  13. LORAZEPAM [Concomitant]
     Dosage: 1 MG, UNK
  14. YASMIN [Suspect]
     Indication: ACNE
     Dosage: UNK
     Dates: start: 20090201
  15. IBUPROFEN [Concomitant]
     Indication: PAIN
     Dosage: 600 MG, TID
  16. METHYLPREDNISOLONE [Concomitant]
     Dosage: 4 MG, UNK

REACTIONS (15)
  - INJURY [None]
  - PUPIL FIXED [None]
  - RESPIRATORY ARREST [None]
  - EMOTIONAL DISTRESS [None]
  - PLEURAL EFFUSION [None]
  - HEART RATE DECREASED [None]
  - DRUG SCREEN POSITIVE [None]
  - ANXIETY [None]
  - PULMONARY EMBOLISM [None]
  - DEEP VEIN THROMBOSIS [None]
  - DRUG ABUSE [None]
  - DEPRESSION [None]
  - BLOOD PRESSURE DECREASED [None]
  - PAIN [None]
  - UNRESPONSIVE TO STIMULI [None]
